FAERS Safety Report 11799321 (Version 1)
Quarter: 2015Q4

REPORT INFORMATION
  Report Type: Report from Study
  Country: US (occurrence: US)
  Receive Date: 20151203
  Receipt Date: 20151203
  Transmission Date: 20160305
  Serious: No
  Sender: FDA-Public Use
  Company Number: US-AMGEN-USASL2015117498

PATIENT
  Age: 75 Year
  Sex: Female
  Weight: 88.89 kg

DRUGS (8)
  1. REPATHA [Suspect]
     Active Substance: EVOLOCUMAB
     Indication: HYPERLIPIDAEMIA
     Dosage: 140 MG, Q2WK
     Route: 065
     Dates: start: 20151105
  2. REPATHA [Suspect]
     Active Substance: EVOLOCUMAB
     Indication: CORONARY ARTERY DISEASE
  3. METOPROLOL TARTRATE. [Concomitant]
     Active Substance: METOPROLOL TARTRATE
     Indication: HYPERTENSION
     Dosage: 50 MG, BID
     Route: 048
  4. FUROSEMIDE. [Concomitant]
     Active Substance: FUROSEMIDE
     Indication: OEDEMA
     Dosage: 20 MG, QD
     Route: 048
  5. ASPIRIN                            /00002701/ [Concomitant]
     Active Substance: ASPIRIN
     Indication: CORONARY ARTERY DISEASE
     Dosage: 81 MG, QD
     Route: 048
  6. LISINOPRIL. [Concomitant]
     Active Substance: LISINOPRIL
     Indication: HYPERTENSION
     Dosage: 40 MG, QD
     Route: 048
  7. MECLIZINE [Concomitant]
     Active Substance: MECLIZINE\MECLIZINE HYDROCHLORIDE
     Indication: VERTIGO
     Dosage: 25 MG, TID (AS NEEDED)
     Route: 048
  8. INSULIN [Concomitant]
     Active Substance: INSULIN NOS

REACTIONS (10)
  - Dizziness [Unknown]
  - Injection site pain [Recovering/Resolving]
  - Injection site discolouration [Unknown]
  - Injection site bruising [Unknown]
  - Influenza like illness [Unknown]
  - Injection site erythema [Recovering/Resolving]
  - Vision blurred [Unknown]
  - Injection site reaction [Unknown]
  - Presyncope [Unknown]
  - Nausea [Unknown]

NARRATIVE: CASE EVENT DATE: 20151105
